FAERS Safety Report 9728752 (Version 1)
Quarter: 2013Q4

REPORT INFORMATION
  Report Type: Spontaneous
  Country: US (occurrence: US)
  Receive Date: 20131204
  Receipt Date: 20131204
  Transmission Date: 20140711
  Serious: Yes (Death)
  Sender: FDA-Public Use
  Company Number: US-PFIZER INC-2013343413

PATIENT
  Age: 68 Year
  Sex: Female

DRUGS (7)
  1. XALKORI [Suspect]
     Indication: LUNG NEOPLASM MALIGNANT
     Dosage: 250 MG, UNK
     Dates: start: 20131115
  2. COMPAZINE [Concomitant]
     Dosage: UNK
  3. MORPHINE SULFATE [Concomitant]
     Dosage: UNK
  4. VENLAFAXINE HYDROCHLORIDE [Concomitant]
     Dosage: UNK
  5. TRAZODONE HYDROCHLORIDE [Concomitant]
     Dosage: UNK
  6. XARELTO [Concomitant]
     Dosage: UNK
  7. JANUMET [Concomitant]
     Dosage: UNK

REACTIONS (1)
  - Death [Fatal]
